FAERS Safety Report 14838147 (Version 1)
Quarter: 2018Q2

REPORT INFORMATION
  Report Type: Spontaneous
  Country: FR (occurrence: FR)
  Receive Date: 20180502
  Receipt Date: 20180502
  Transmission Date: 20180711
  Serious: Yes (Life-Threatening, Hospitalization)
  Sender: FDA-Public Use
  Company Number: FR-ELI_LILLY_AND_COMPANY-FR201804014429

PATIENT
  Age: 68 Year
  Sex: Male
  Weight: 102 kg

DRUGS (11)
  1. HYDROCHLOROTHIAZIDE. [Suspect]
     Active Substance: HYDROCHLOROTHIAZIDE
     Indication: HYPERTENSION
     Dosage: 25 MG, UNKNOWN
     Route: 048
  2. ROSUVASTATINE                      /01588601/ [Suspect]
     Active Substance: ROSUVASTATIN
     Indication: HYPERCHOLESTEROLAEMIA
     Dosage: 5 MG, UNKNOWN
     Route: 048
  3. IRBESARTAN. [Suspect]
     Active Substance: IRBESARTAN
     Indication: HYPERTENSION
     Dosage: 300 MG, UNKNOWN
     Route: 048
  4. CHLORURE DE POTASSIUM [Suspect]
     Active Substance: POTASSIUM CHLORIDE
     Indication: PRODUCT USED FOR UNKNOWN INDICATION
     Dosage: 1 G, UNKNOWN
     Route: 042
  5. REPAGLINIDE. [Suspect]
     Active Substance: REPAGLINIDE
     Indication: DIABETES MELLITUS
     Dosage: 2 MG, UNKNOWN
     Route: 048
  6. VENLAFAXINE [Interacting]
     Active Substance: VENLAFAXINE HYDROCHLORIDE
     Indication: NARCOLEPSY
     Dosage: 300 MG, UNKNOWN
     Route: 048
     Dates: start: 2012, end: 20180419
  7. LANTUS [Suspect]
     Active Substance: INSULIN GLARGINE
     Indication: DIABETES MELLITUS
     Dosage: 52 IU, UNKNOWN
     Route: 058
  8. METFORMINE                         /00082701/ [Suspect]
     Active Substance: METFORMIN HYDROCHLORIDE
     Indication: DIABETES MELLITUS
     Dosage: 3 G, UNKNOWN
     Route: 048
  9. OLANZAPINE. [Suspect]
     Active Substance: OLANZAPINE
     Indication: PRODUCT USED FOR UNKNOWN INDICATION
     Dosage: 5 MG, UNKNOWN
     Route: 048
     Dates: start: 2012
  10. VICTOZA [Suspect]
     Active Substance: LIRAGLUTIDE
     Indication: DIABETES MELLITUS
     Dosage: 0.6 MG, UNKNOWN
     Route: 058
  11. ATTENTIN /00016602/ [Interacting]
     Active Substance: DEXTROAMPHETAMINE SULFATE
     Indication: NARCOLEPSY
     Dosage: 20 MG, DAILY
     Route: 048
     Dates: start: 20171114, end: 20180419

REACTIONS (3)
  - Drug interaction [Unknown]
  - Cardio-respiratory arrest [Unknown]
  - Ventricular fibrillation [Unknown]

NARRATIVE: CASE EVENT DATE: 20180419
